FAERS Safety Report 6322840-4 (Version None)
Quarter: 2009Q3

REPORT INFORMATION
  Report Type: 
  Country: None (occurrence: None)
  Receive Date: 20090824
  Receipt Date: 20090817
  Transmission Date: 20100115
  Serious: Yes (Life-Threatening, Hospitalization, Other)
  Sender: FDA-Public Use
  Company Number: PHHY2009BR34622

PATIENT
  Sex: Male
  Weight: 79 kg

DRUGS (2)
  1. FORASEQ [Suspect]
     Indication: DYSPNOEA
     Dosage: ONCE A DAY OR TWICE A DAY
  2. FORASEQ [Suspect]
     Indication: BRONCHIAL DISORDER

REACTIONS (11)
  - CYANOSIS CENTRAL [None]
  - DEPRESSED MOOD [None]
  - DRUG INEFFECTIVE [None]
  - DYSPNOEA [None]
  - EJACULATION DISORDER [None]
  - ERECTILE DYSFUNCTION [None]
  - EXOPHTHALMOS [None]
  - FEELING ABNORMAL [None]
  - PANIC DISORDER [None]
  - TREMOR [None]
  - WHEEZING [None]
